FAERS Safety Report 9299147 (Version 2)
Quarter: 2013Q3

REPORT INFORMATION
  Report Type: Report from Study
  Country: DE (occurrence: DE)
  Receive Date: 20130520
  Receipt Date: 20130819
  Transmission Date: 20140515
  Serious: Yes (Hospitalization)
  Sender: FDA-Public Use
  Company Number: DE-TEVA-403504GER

PATIENT
  Sex: Female

DRUGS (14)
  1. DOXORUBICIN [Suspect]
     Indication: B-CELL LYMPHOMA
     Dosage: 50 MG/M2 DAILY;
     Route: 042
     Dates: start: 20130226
  2. PREDNISONE [Suspect]
     Indication: B-CELL LYMPHOMA
     Dosage: 100 MILLIGRAM DAILY; 100 MG, DAILY, DAY 1-5
     Route: 048
     Dates: start: 20130226
  3. RITUXIMAB [Suspect]
     Indication: B-CELL LYMPHOMA
     Dosage: 375 MG/M2 DAILY; 375 MG/M2, DAILY, DAY 1
     Route: 042
     Dates: start: 20130219
  4. PEGFILGRASTIM [Suspect]
     Indication: B-CELL LYMPHOMA
     Dosage: 375 MG/M2 DAILY; 6 MG, DAILY, DAY 1
     Route: 058
     Dates: start: 20130301
  5. CYCLOPHOSPHAMIDE [Suspect]
     Indication: B-CELL LYMPHOMA
     Dosage: 750 MG/M2 DAILY; 750 MG/M2, DAILY, DAY 1
     Route: 042
     Dates: start: 20130226
  6. LIPOSOMAL VINCRISTINE [Suspect]
     Indication: B-CELL LYMPHOMA
     Dosage: 2 MG/M2 DAILY; 2 MG/M2, DAILY, DAY 1
     Route: 042
     Dates: start: 20130226
  7. MESNA [Concomitant]
     Indication: PROPHYLAXIS
     Dosage: 600 MILLIGRAM DAILY; 600 MG, DAILY, DAY 1
     Route: 048
     Dates: start: 20130226
  8. MESNA [Concomitant]
     Dosage: 400 MILLIGRAM DAILY; 400 MG, DAILY, DAY 1
     Route: 042
     Dates: start: 20130226
  9. AMPHOTERICIN B [Concomitant]
     Indication: PROPHYLAXIS
     Dosage: 1 MILLIGRAM DAILY; 1 MG, DAILY
     Route: 048
     Dates: start: 20130304
  10. ACICLOVIR [Concomitant]
     Indication: PROPHYLAXIS
     Dosage: 400 MILLIGRAM DAILY; 400 MG, DAILY, DAY 1
     Route: 048
     Dates: start: 20130226
  11. PARACETAMOL [Concomitant]
     Indication: PROPHYLAXIS
     Dosage: 1 GRAM DAILY; 1 G, DAILY, DAY 1
     Route: 048
     Dates: start: 20130219
  12. SULFAMETHOXAZOLE/TRIMETHOPRIM [Concomitant]
     Indication: PROPHYLAXIS
     Route: 048
  13. CIPROFLOXACIN [Concomitant]
     Indication: PROPHYLAXIS
     Dosage: 500 MILLIGRAM DAILY; 500 MG, DAILY, DAY 6
     Route: 048
  14. CLEMASTINE [Concomitant]
     Indication: PROPHYLAXIS
     Dosage: 1 DOSAGE FORMS DAILY; 1 DF, DAILY, DAY 6
     Route: 042
     Dates: start: 20130219

REACTIONS (1)
  - Blood creatinine increased [Unknown]
